FAERS Safety Report 8511202-7 (Version None)
Quarter: 2012Q3

REPORT INFORMATION
  Report Type: 
  Country: None (occurrence: None)
  Receive Date: 20120716
  Receipt Date: 20120705
  Transmission Date: 20120928
  Serious: Yes (Death, Life-Threatening)
  Sender: FDA-Public Use
  Company Number: KR-MILLENNIUM PHARMACEUTICALS, INC.-2011-05975

PATIENT

DRUGS (7)
  1. PREDNISOLONE [Suspect]
     Indication: MULTIPLE MYELOMA
     Dosage: 60 MG/M2, UNK
     Route: 065
     Dates: start: 20111007, end: 20111010
  2. MELPHALAN HYDROCHLORIDE [Suspect]
     Indication: MULTIPLE MYELOMA
     Dosage: 9 MG/M2, UNK
     Route: 065
     Dates: start: 20111007, end: 20111008
  3. VELCADE [Suspect]
     Dosage: 1.0 MG/M2, UNK
     Route: 042
     Dates: start: 20111026, end: 20111026
  4. DEXTROSE [Concomitant]
     Indication: PROPHYLAXIS
     Dosage: 1000 ML, UNK
     Route: 042
     Dates: start: 20111118, end: 20111120
  5. VELCADE [Suspect]
     Indication: MULTIPLE MYELOMA
     Dosage: 1.3 MG/M2, UNK
     Route: 042
     Dates: start: 20111007, end: 20111007
  6. VELCADE [Suspect]
     Dosage: 1.0 MG/M2, UNK
     Route: 042
     Dates: start: 20111019, end: 20111019
  7. VELCADE [Suspect]
     Dosage: 0.7 MG/M2, UNK
     Route: 042
     Dates: start: 20021023, end: 20111023

REACTIONS (1)
  - CEREBRAL HAEMORRHAGE [None]
